FAERS Safety Report 8473998-2 (Version None)
Quarter: 2012Q2

REPORT INFORMATION
  Report Type: 
  Country: None (occurrence: None)
  Receive Date: 20120628
  Receipt Date: 20120502
  Transmission Date: 20120825
  Serious: Yes (Death)
  Sender: FDA-Public Use
  Company Number: US-MYLANLABS-2012S1005624

PATIENT
  Age: 58 Year
  Sex: Female
  Weight: 78.47 kg

DRUGS (1)
  1. CLOZAPINE [Suspect]

REACTIONS (1)
  - DEATH [None]
